FAERS Safety Report 6921635-8 (Version None)
Quarter: 2010Q3

REPORT INFORMATION
  Report Type: 
  Country: None (occurrence: None)
  Receive Date: 20100812
  Receipt Date: 20100803
  Transmission Date: 20110219
  Serious: Yes (Congenital Anomaly, Other)
  Sender: FDA-Public Use
  Company Number: BR-B.I. PHARMACEUTICALS,INC./RIDGEFIELD-2010-BP-08492BP

PATIENT
  Sex: Male
  Weight: 1.7 kg

DRUGS (12)
  1. VIRAMUNE [Suspect]
     Indication: DRUG EXPOSURE DURING PREGNANCY
     Route: 064
     Dates: start: 20030306, end: 20030812
  2. ALUMINUM HYDROXIDE GEL [Concomitant]
     Indication: DRUG EXPOSURE DURING PREGNANCY
     Route: 064
  3. AMOXICILLIN [Concomitant]
     Indication: DRUG EXPOSURE DURING PREGNANCY
     Route: 064
  4. CEFALEXIN [Concomitant]
     Indication: DRUG EXPOSURE DURING PREGNANCY
     Route: 064
  5. FERROUS SULFATE [Concomitant]
     Indication: DRUG EXPOSURE DURING PREGNANCY
     Route: 064
  6. FOLIC ACID [Concomitant]
     Indication: DRUG EXPOSURE DURING PREGNANCY
     Route: 064
  7. HYOSCINE [Concomitant]
     Indication: DRUG EXPOSURE DURING PREGNANCY
     Route: 064
  8. METAMIZOLE SODIUM [Concomitant]
     Indication: DRUG EXPOSURE DURING PREGNANCY
     Route: 064
  9. METOCLOPRAMIDE [Concomitant]
     Indication: DRUG EXPOSURE DURING PREGNANCY
     Route: 064
  10. ACETAMINOPHEN [Concomitant]
     Indication: DRUG EXPOSURE DURING PREGNANCY
     Route: 064
  11. SODIUM CHLORIDE [Concomitant]
     Indication: DRUG EXPOSURE DURING PREGNANCY
     Route: 064
  12. COMBIVIR [Concomitant]
     Indication: DRUG EXPOSURE DURING PREGNANCY
     Route: 064
     Dates: start: 20030306, end: 20030812

REACTIONS (2)
  - ATRIAL SEPTAL DEFECT [None]
  - SMALL FOR DATES BABY [None]
